FAERS Safety Report 13811917 (Version 3)
Quarter: 2018Q1

REPORT INFORMATION
  Report Type: Report from Study
  Country: US (occurrence: US)
  Receive Date: 20170728
  Receipt Date: 20180125
  Transmission Date: 20180508
  Serious: No
  Sender: FDA-Public Use
  Company Number: US-AMGEN-USASL2017094891

PATIENT
  Age: 65 Year
  Sex: Female

DRUGS (2)
  1. REPATHA [Suspect]
     Active Substance: EVOLOCUMAB
     Indication: HYPERLIPIDAEMIA
     Dosage: 140 MG, Q2WK
     Route: 065
     Dates: start: 20170503, end: 20170628
  2. REPATHA [Suspect]
     Active Substance: EVOLOCUMAB
     Indication: HYPERCHOLESTEROLAEMIA

REACTIONS (9)
  - Paraesthesia oral [Unknown]
  - Paraesthesia [Unknown]
  - Alopecia [Recovering/Resolving]
  - Flushing [Recovering/Resolving]
  - Headache [Unknown]
  - Immune system disorder [Recovering/Resolving]
  - Pruritus [Recovered/Resolved]
  - Skin burning sensation [Recovered/Resolved]
  - Gingival pain [Recovering/Resolving]

NARRATIVE: CASE EVENT DATE: 2017
